FAERS Safety Report 9126996 (Version 1)
Quarter: 2013Q1

REPORT INFORMATION
  Report Type: Spontaneous
  Country: JP (occurrence: JP)
  Receive Date: 20130122
  Receipt Date: 20130122
  Transmission Date: 20140127
  Serious: Yes (Other)
  Sender: FDA-Public Use
  Company Number: JP-GLAXOSMITHKLINE-B0860866A

PATIENT
  Age: 4 Year
  Sex: Male
  Weight: 15 kg

DRUGS (4)
  1. RELENZA [Suspect]
     Indication: INFLUENZA
     Dosage: 10MG TWICE PER DAY
     Route: 055
     Dates: start: 20130104, end: 20130109
  2. ALPINY [Concomitant]
     Route: 054
  3. POLARAMINE [Concomitant]
     Route: 065
  4. MUCODYNE [Concomitant]
     Route: 048

REACTIONS (1)
  - Loss of consciousness [Recovered/Resolved]
